FAERS Safety Report 9211929 (Version 2)
Quarter: 2013Q2

REPORT INFORMATION
  Report Type: Spontaneous
  Country: FR (occurrence: FR)
  Receive Date: 20130404
  Receipt Date: 20130516
  Transmission Date: 20140414
  Serious: Yes (Hospitalization, Other)
  Sender: FDA-Public Use
  Company Number: FR-MYLANLABS-2013S1006508

PATIENT
  Age: 65 Year
  Sex: Male

DRUGS (3)
  1. IRINOTECAN [Suspect]
     Indication: PRODUCT USED FOR UNKNOWN INDICATION
     Route: 042
     Dates: start: 20110404, end: 20121119
  2. AVASTATIN [Suspect]
     Indication: PRODUCT USED FOR UNKNOWN INDICATION
     Route: 042
     Dates: start: 20110404, end: 20121119
  3. FLUOROURACIL [Suspect]
     Indication: PRODUCT USED FOR UNKNOWN INDICATION
     Route: 042
     Dates: start: 20110404, end: 20121119

REACTIONS (3)
  - Transient ischaemic attack [Recovered/Resolved]
  - Atrial flutter [None]
  - Supraventricular extrasystoles [None]
